FAERS Safety Report 18747650 (Version 1)
Quarter: 2021Q1

REPORT INFORMATION
  Report Type: Spontaneous
  Country: US (occurrence: US)
  Receive Date: 20210115
  Receipt Date: 20210115
  Transmission Date: 20210419
  Serious: No
  Sender: FDA-Public Use
  Company Number: US-PFIZER INC-2018498414

PATIENT
  Age: 65 Year
  Sex: Female

DRUGS (4)
  1. LYRICA [Suspect]
     Active Substance: PREGABALIN
     Indication: DIABETIC NEUROPATHY
     Dosage: 150 MG, 3X/DAY (1 CAPSULE 3X DAY)
  2. LYRICA [Suspect]
     Active Substance: PREGABALIN
     Dosage: 600 MG
  3. LYRICA [Suspect]
     Active Substance: PREGABALIN
     Indication: SEIZURE
     Dosage: 300 MG, 2X/DAY
  4. LYRICA [Suspect]
     Active Substance: PREGABALIN
     Dosage: 400 MG, UNK

REACTIONS (2)
  - Malaise [Unknown]
  - Prescribed overdose [Unknown]
